FAERS Safety Report 21123964 (Version 1)
Quarter: 2022Q3

REPORT INFORMATION
  Report Type: Other
  Country: None (occurrence: AU)
  Receive Date: 20220725
  Receipt Date: 20220725
  Transmission Date: 20221027
  Serious: Yes (Other)
  Sender: FDA-Public Use
  Company Number: AU-ACI HealthCare Limited-2131178

PATIENT
  Age: 39 Year
  Sex: Male

DRUGS (2)
  1. TRAMADOL HYDROCHLORIDE [Suspect]
     Active Substance: TRAMADOL HYDROCHLORIDE
     Indication: Pain
     Route: 065
  2. DESVENLAFAXINE [Concomitant]
     Active Substance: DESVENLAFAXINE
     Route: 065

REACTIONS (2)
  - Acute psychosis [Recovered/Resolved]
  - Drug abuse [Recovered/Resolved]
